FAERS Safety Report 9916669 (Version 2)
Quarter: 2014Q1

REPORT INFORMATION
  Report Type: Report from Study
  Country: FR (occurrence: FR)
  Receive Date: 20140221
  Receipt Date: 20140310
  Transmission Date: 20141002
  Serious: Yes (Death, Life-Threatening, Hospitalization, Disabling)
  Sender: FDA-Public Use
  Company Number: FR-MILLENNIUM PHARMACEUTICALS, INC.-2014JNJ000413

PATIENT
  Sex: 0

DRUGS (23)
  1. VELCADE [Suspect]
     Indication: PLASMA CELL MYELOMA
     Dosage: UNK
     Route: 065
     Dates: start: 20120305, end: 20120920
  2. NASACORT [Concomitant]
     Dosage: UNK
     Dates: end: 20121018
  3. XYZALL [Concomitant]
     Dosage: UNK
     Dates: end: 20121018
  4. SERETIDE [Concomitant]
     Dosage: UNK
     Dates: end: 20121018
  5. FLUDEX                             /00340101/ [Concomitant]
     Dosage: UNK
     Dates: end: 20121018
  6. SIMVASTATINE [Concomitant]
     Dosage: UNK
     Dates: end: 20121018
  7. GLIMEPIRIDE [Concomitant]
     Dosage: UNK
     Dates: end: 20121018
  8. ZOLPIDEM [Concomitant]
     Dosage: UNK
     Dates: end: 20121018
  9. PIASCLEDINE                        /00809501/ [Concomitant]
     Dosage: UNK
     Dates: end: 20121018
  10. LERCAN [Concomitant]
     Dosage: UNK
     Dates: end: 20121018
  11. LANSOPRAZOLE [Concomitant]
     Dosage: UNK
     Dates: end: 20121018
  12. BACTRIM [Concomitant]
     Dosage: UNK
     Dates: start: 20120303, end: 20121018
  13. ZELITREX [Concomitant]
     Dosage: UNK
     Dates: start: 20120303, end: 20121018
  14. LEDERFOLINE [Concomitant]
     Dosage: UNK
     Dates: start: 20120303, end: 20121018
  15. INEXIUM                            /01479302/ [Concomitant]
     Dosage: UNK
     Dates: start: 20120625, end: 20121018
  16. PHLOROGLUCINOL [Concomitant]
     Dosage: UNK
     Dates: start: 20120626, end: 20121018
  17. TIORFAN [Concomitant]
     Dosage: UNK
     Dates: start: 20120626, end: 20121018
  18. BIPERIDYS [Concomitant]
     Dosage: UNK
     Dates: start: 20120626, end: 20121018
  19. GRANOCYTE 34 [Concomitant]
     Dosage: UNK
     Dates: start: 20120601, end: 20121006
  20. NEORECORMON [Concomitant]
     Dosage: UNK
     Dates: start: 20120831
  21. PARACETAMOL [Concomitant]
     Dosage: UNK
     Dates: start: 20121013, end: 20121016
  22. ROCEPHINE [Concomitant]
     Dosage: UNK
     Dates: start: 20121013, end: 20121018
  23. DEXAMETHASONE [Concomitant]
     Indication: PLASMA CELL MYELOMA
     Dosage: UNK
     Dates: start: 2011, end: 20120920

REACTIONS (1)
  - General physical health deterioration [Fatal]
